FAERS Safety Report 8390851-3 (Version None)
Quarter: 2012Q2

REPORT INFORMATION
  Report Type: 
  Country: None (occurrence: None)
  Receive Date: 20120516
  Receipt Date: 20120503
  Transmission Date: 20120825
  Serious: Yes (Other)
  Sender: FDA-Public Use
  Company Number: 2012SP023751

PATIENT
  Sex: Female

DRUGS (4)
  1. RIBAVIRIN [Suspect]
     Indication: HEPATITIS C
     Dates: start: 20110301, end: 20110401
  2. RIBAVIRIN [Suspect]
     Indication: HEPATITIS C
     Dates: start: 20120330
  3. PEGASYS [Suspect]
     Indication: HEPATITIS C
     Dates: start: 20120330
  4. PEGASYS [Suspect]
     Indication: HEPATITIS C
     Dates: start: 20110301, end: 20110401

REACTIONS (3)
  - AMNESIA [None]
  - SUICIDE ATTEMPT [None]
  - ALCOHOL USE [None]
